FAERS Safety Report 25229629 (Version 1)
Quarter: 2025Q2

REPORT INFORMATION
  Report Type: Spontaneous
  Country: GB (occurrence: GB)
  Receive Date: 20250423
  Receipt Date: 20250423
  Transmission Date: 20250716
  Serious: Yes (Other)
  Sender: MSN LABORATORIES PRIVATE LIMITED
  Company Number: GB-MHRA-TPP23120241C18936580YC1744292998673

PATIENT

DRUGS (9)
  1. ATORVASTATIN [Suspect]
     Active Substance: ATORVASTATIN
     Indication: Blood cholesterol increased
     Dosage: ONE TO BE TAKEN DAILY TO LOWER CHOLESTEROL
     Route: 065
     Dates: start: 20241114, end: 20250410
  2. APIXABAN [Concomitant]
     Active Substance: APIXABAN
     Indication: Ill-defined disorder
     Dosage: ONE TABLET  TWICE DAILY, TO PREVENT BLOOD CLOTS
     Route: 065
     Dates: start: 20241125
  3. APIXABAN [Concomitant]
     Active Substance: APIXABAN
  4. DAPAGLIFLOZIN [Concomitant]
     Active Substance: DAPAGLIFLOZIN
     Indication: Ill-defined disorder
     Dosage: TAKE ONE DAILY, INSTRUCTED BY CARDIOLOGY.
     Route: 065
     Dates: start: 20241114
  5. ROSUVASTATIN [Concomitant]
     Active Substance: ROSUVASTATIN
     Indication: Ill-defined disorder
     Dosage: TAKE ONE DAILY
     Route: 065
     Dates: start: 20250410
  6. CARVEDILOL [Concomitant]
     Active Substance: CARVEDILOL
     Indication: Ill-defined disorder
     Dosage: ONE TO BE TAKEN TWICE A DAY
     Route: 065
     Dates: start: 20241114
  7. OMEPRAZOLE [Concomitant]
     Active Substance: OMEPRAZOLE
     Indication: Ill-defined disorder
     Dosage: TAKE ONE DAILY
     Route: 065
     Dates: start: 20241114
  8. SACUBITRIL [Concomitant]
     Active Substance: SACUBITRIL
     Indication: Ill-defined disorder
     Dosage: TTAKE ONE TWICE DAILY
     Route: 065
     Dates: start: 20241114
  9. SPIRONOLACTONE [Concomitant]
     Active Substance: SPIRONOLACTONE
     Indication: Ill-defined disorder
     Dosage: TAKE HALF A TABLET ONCE DAILY
     Route: 065
     Dates: start: 20241114

REACTIONS (2)
  - Musculoskeletal stiffness [Unknown]
  - Myalgia [Recovering/Resolving]
